FAERS Safety Report 8290512-5 (Version None)
Quarter: 2012Q2

REPORT INFORMATION
  Report Type: 
  Country: None (occurrence: None)
  Receive Date: 20120417
  Receipt Date: 20110523
  Transmission Date: 20120825
  Serious: No
  Sender: FDA-Public Use
  Company Number: US-ASTRAZENECA-2011SE31683

PATIENT
  Age: 67 Year
  Sex: Female
  Weight: 83.9 kg

DRUGS (1)
  1. NEXIUM [Suspect]
     Indication: GASTRIC ULCER
     Route: 048
     Dates: start: 20110520, end: 20110522

REACTIONS (3)
  - CHEST PAIN [None]
  - DISCOMFORT [None]
  - RENAL PAIN [None]
